FAERS Safety Report 6263342-3 (Version None)
Quarter: 2009Q3

REPORT INFORMATION
  Report Type: 
  Country: None (occurrence: None)
  Receive Date: 20090710
  Receipt Date: 20080707
  Transmission Date: 20100115
  Serious: No
  Sender: FDA-Public Use
  Company Number: A0725361A

PATIENT
  Sex: Female

DRUGS (6)
  1. FLOVENT [Suspect]
     Indication: DRUG USE FOR UNKNOWN INDICATION
     Dosage: 2PUFF TWICE PER DAY
     Route: 055
     Dates: start: 20041201
  2. ACCOLATE [Concomitant]
  3. NEXIUM [Concomitant]
  4. BLOOD PRESSURE MEDICATION [Concomitant]
  5. MULTI-VITAMIN [Concomitant]
  6. ASCORBIC ACID [Concomitant]

REACTIONS (2)
  - CHEST DISCOMFORT [None]
  - PRODUCT QUALITY ISSUE [None]
